FAERS Safety Report 21119872 (Version 1)
Quarter: 2022Q3

REPORT INFORMATION
  Report Type: Spontaneous
  Country: US (occurrence: None)
  Receive Date: 20220721
  Receipt Date: 20220721
  Transmission Date: 20221027
  Serious: Yes (Other)
  Sender: FDA-Public Use
  Company Number: None

PATIENT
  Age: 28 Year
  Sex: Female
  Weight: 135 kg

DRUGS (1)
  1. MIRENA [Suspect]
     Active Substance: LEVONORGESTREL
     Dates: start: 20210305, end: 20220623

REACTIONS (6)
  - Procedural pain [None]
  - Post procedural haemorrhage [None]
  - Procedural pain [None]
  - Panic attack [None]
  - Loss of personal independence in daily activities [None]
  - Muscle spasms [None]

NARRATIVE: CASE EVENT DATE: 20210305
